FAERS Safety Report 12824475 (Version 1)
Quarter: 2016Q4

REPORT INFORMATION
  Report Type: Spontaneous
  Country: US (occurrence: US)
  Receive Date: 20161007
  Receipt Date: 20161007
  Transmission Date: 20170207
  Serious: Yes (Hospitalization)
  Sender: FDA-Public Use
  Company Number: None

PATIENT
  Age: 59 Year
  Sex: Female
  Weight: 52.6 kg

DRUGS (1)
  1. MEMANTINE HYDROCHLORIDE. [Suspect]
     Active Substance: MEMANTINE HYDROCHLORIDE
     Dates: end: 20160919

REACTIONS (5)
  - Decreased appetite [None]
  - Weight decreased [None]
  - Respiratory disorder [None]
  - Fatigue [None]
  - Blood calcium increased [None]

NARRATIVE: CASE EVENT DATE: 20160912
